FAERS Safety Report 21978628 (Version 2)
Quarter: 2023Q1

REPORT INFORMATION
  Report Type: Report from Study
  Country: MY (occurrence: MY)
  Receive Date: 20230210
  Receipt Date: 20230323
  Transmission Date: 20230418
  Serious: Yes (Death)
  Sender: FDA-Public Use
  Company Number: MY-002147023-NVSC2023MY029522

PATIENT
  Age: 35 Year
  Sex: Male
  Weight: 60 kg

DRUGS (3)
  1. NELARABINE [Suspect]
     Active Substance: NELARABINE
     Indication: T-cell type acute leukaemia
     Dosage: 1000 MG
     Route: 042
     Dates: start: 20221216, end: 20221220
  2. ETOPOSIDE [Concomitant]
     Active Substance: ETOPOSIDE
     Indication: Chemotherapy
     Dosage: 100 MG/M2
     Route: 065
     Dates: start: 20221209, end: 20221213
  3. CYCLOPHOSPHAMIDE [Concomitant]
     Active Substance: CYCLOPHOSPHAMIDE
     Indication: Chemotherapy
     Dosage: 400 MG/M2
     Route: 065
     Dates: start: 20221209, end: 20221213

REACTIONS (4)
  - T-cell type acute leukaemia [Fatal]
  - Malignant neoplasm progression [Fatal]
  - White blood cell count increased [Unknown]
  - Drug resistance [Unknown]

NARRATIVE: CASE EVENT DATE: 20230105
